FAERS Safety Report 16501551 (Version 1)
Quarter: 2019Q3

REPORT INFORMATION
  Report Type: Spontaneous
  Country: DK (occurrence: DK)
  Receive Date: 20190701
  Receipt Date: 20190701
  Transmission Date: 20191004
  Serious: Yes (Disabling)
  Sender: FDA-Public Use
  Company Number: DK-EMD SERONO-E2B_90068727

PATIENT
  Age: 30 Year
  Sex: Male
  Weight: 74 kg

DRUGS (3)
  1. ALNOK [Concomitant]
     Active Substance: CETIRIZINE HYDROCHLORIDE
     Indication: HYPERSENSITIVITY
     Route: 048
     Dates: start: 20180705
  2. MAVENCLAD [Suspect]
     Active Substance: CLADRIBINE
     Indication: MULTIPLE SCLEROSIS
     Dosage: MAVENCLAD DOSED ANNUALLY AFTER WEIGHT.
     Route: 048
     Dates: start: 20180604
  3. CITALOPRAM [Concomitant]
     Active Substance: CITALOPRAM HYDROBROMIDE
     Indication: DEPRESSION
     Route: 048
     Dates: start: 20180717

REACTIONS (2)
  - Vocal cord paresis [Not Recovered/Not Resolved]
  - Paralysis [Recovered/Resolved with Sequelae]

NARRATIVE: CASE EVENT DATE: 20190503
